FAERS Safety Report 5358496-7 (Version None)
Quarter: 2007Q2

REPORT INFORMATION
  Report Type: 
  Country: None (occurrence: None)
  Receive Date: 20070614
  Receipt Date: 20070614
  Transmission Date: 20071010
  Serious: Yes (Other)
  Sender: FDA-Public Use
  Company Number: None

PATIENT
  Age: 54 Year
  Sex: Female
  Weight: 98.8842 kg

DRUGS (2)
  1. PEGASYS [Suspect]
     Indication: HEPATITIS C
     Dates: start: 20070301, end: 20070601
  2. RIBAVIRIN [Suspect]
     Indication: HEPATITIS C
     Dates: start: 20070301, end: 20070501

REACTIONS (1)
  - WHITE BLOOD CELL COUNT DECREASED [None]
